FAERS Safety Report 4495884-5 (Version None)
Quarter: 2004Q4

REPORT INFORMATION
  Report Type: 
  Country: None (occurrence: None)
  Receive Date: 20041104
  Receipt Date: 20041022
  Transmission Date: 20050328
  Serious: Yes (Other)
  Sender: FDA-Public Use
  Company Number: US014172

PATIENT
  Age: 4 Year
  Sex: Female
  Weight: 12.8 kg

DRUGS (3)
  1. FENTANYL [Suspect]
     Indication: PAIN
     Dosage: 200 UG ONCE ORAL
     Route: 048
  2. FLUOXETINE [Suspect]
     Indication: ANXIETY
     Dosage: 5 MG QD ORAL
     Route: 048
  3. LINEZOLID [Suspect]
     Dosage: 140 MG Q12HR ORAL
     Route: 048

REACTIONS (9)
  - AGITATION [None]
  - DRUG INTERACTION [None]
  - EYE MOVEMENT DISORDER [None]
  - MYOCLONUS [None]
  - NYSTAGMUS [None]
  - POST PROCEDURAL COMPLICATION [None]
  - RESTLESSNESS [None]
  - SEROTONIN SYNDROME [None]
  - VISUAL TRACKING TEST ABNORMAL [None]
